FAERS Safety Report 7499035-4 (Version None)
Quarter: 2011Q2

REPORT INFORMATION
  Report Type: 
  Country: None (occurrence: None)
  Receive Date: 20110524
  Receipt Date: 20110207
  Transmission Date: 20111010
  Serious: No
  Sender: FDA-Public Use
  Company Number: US-NOVEN-11US001739

PATIENT
  Sex: Female
  Weight: 70.295 kg

DRUGS (3)
  1. ABILIFY [Concomitant]
     Indication: BIPOLAR DISORDER
     Dosage: 10 MG, UNKNOWN
     Route: 048
     Dates: start: 20060101
  2. DAYTRANA [Suspect]
     Indication: ATTENTION DEFICIT/HYPERACTIVITY DISORDER
     Dosage: 30 MG, QD
     Route: 062
     Dates: start: 20060101
  3. PROZAC [Concomitant]
     Indication: DEPRESSION
     Dosage: 20 MG, UNKNOWN
     Route: 048
     Dates: start: 20091001

REACTIONS (4)
  - WRONG TECHNIQUE IN DRUG USAGE PROCESS [None]
  - NO ADVERSE EVENT [None]
  - INCORRECT DRUG ADMINISTRATION DURATION [None]
  - PRODUCT QUALITY ISSUE [None]
